FAERS Safety Report 5064176-8 (Version None)
Quarter: 2006Q3

REPORT INFORMATION
  Report Type: 
  Country: None (occurrence: None)
  Receive Date: 20060728
  Receipt Date: 20060323
  Transmission Date: 20061208
  Serious: No
  Sender: FDA-Public Use
  Company Number: US-GLAXOSMITHKLINE-A0598842A

PATIENT
  Age: 10 Month
  Sex: Male

DRUGS (3)
  1. ZANTAC [Suspect]
     Dosage: 15ML TWICE PER DAY
     Route: 048
     Dates: start: 20050801
  2. ZYRTEC [Suspect]
     Route: 048
     Dates: start: 20060322, end: 20060322
  3. NO CONCURRENT MEDICATION [Concomitant]

REACTIONS (2)
  - MEDICATION ERROR [None]
  - VOMITING [None]
